FAERS Safety Report 7135378-1 (Version None)
Quarter: 2010Q4

REPORT INFORMATION
  Report Type: 
  Country: None (occurrence: None)
  Receive Date: 20101203
  Receipt Date: 20101124
  Transmission Date: 20110411
  Serious: Yes (Other)
  Sender: FDA-Public Use
  Company Number: JP-JNJFOC-20101104980

PATIENT
  Age: 58 Year
  Sex: Male

DRUGS (2)
  1. REMICADE [Suspect]
     Indication: RHEUMATOID ARTHRITIS
     Route: 042
  2. REMICADE [Suspect]
     Dosage: 7 DOSES ADMINISTERED SUBSEQUENTLY, ON UNKNOWN DATES; DISCONTINUED AFTER THE 8TH INFUSION
     Route: 042

REACTIONS (2)
  - PLEURAL EFFUSION [None]
  - PLEURISY [None]
